FAERS Safety Report 19837053 (Version 1)
Quarter: 2021Q3

REPORT INFORMATION
  Report Type: Spontaneous
  Country: US (occurrence: US)
  Receive Date: 20210916
  Receipt Date: 20210916
  Transmission Date: 20211014
  Serious: Yes (Hospitalization, Other)
  Sender: FDA-Public Use
  Company Number: US-ABBVIE-21K-163-4081355-00

PATIENT
  Age: 73 Year
  Sex: Female
  Weight: 92.3 kg

DRUGS (2)
  1. DECITABINE. [Suspect]
     Active Substance: DECITABINE
     Indication: ACUTE MYELOID LEUKAEMIA
     Dosage: 5 CYCLIC CONSECUTIVE DAYS
     Route: 042
     Dates: end: 20210625
  2. VENCLEXTA [Suspect]
     Active Substance: VENETOCLAX
     Indication: ACUTE MYELOID LEUKAEMIA
     Route: 048
     Dates: start: 20210621, end: 2021

REACTIONS (11)
  - Neutrophil count decreased [Unknown]
  - Sepsis [Not Recovered/Not Resolved]
  - Abdominal distension [Unknown]
  - Early satiety [Unknown]
  - Haemoglobin decreased [Unknown]
  - Blood bilirubin increased [Unknown]
  - Asthenia [Not Recovered/Not Resolved]
  - Hepatic cirrhosis [Unknown]
  - Hypophagia [Unknown]
  - Platelet count decreased [Unknown]
  - Decreased appetite [Unknown]

NARRATIVE: CASE EVENT DATE: 2021
